FAERS Safety Report 17190774 (Version 2)
Quarter: 2020Q1

REPORT INFORMATION
  Report Type: Spontaneous
  Country: US (occurrence: US)
  Receive Date: 20191223
  Receipt Date: 20200129
  Transmission Date: 20200409
  Serious: No
  Sender: FDA-Public Use
  Company Number: US-ASTRAZENECA-2019SF85465

PATIENT
  Age: 41 Year
  Sex: Male

DRUGS (2)
  1. NEXIUM 24HR CLEARMINIS [Suspect]
     Active Substance: ESOMEPRAZOLE MAGNESIUM
     Indication: GASTROOESOPHAGEAL REFLUX DISEASE
     Dosage: UNKNOWN DOSE DAILY
     Route: 048
     Dates: start: 2011
  2. NEXIUM 24HR CLEARMINIS [Suspect]
     Active Substance: ESOMEPRAZOLE MAGNESIUM
     Indication: PANCREATITIS ACUTE
     Dosage: UNKNOWN DOSE DAILY
     Route: 048
     Dates: start: 2011

REACTIONS (3)
  - Intentional product misuse [Unknown]
  - Product physical issue [Unknown]
  - Poor quality product administered [Unknown]

NARRATIVE: CASE EVENT DATE: 2011
